FAERS Safety Report 7994941-6 (Version None)
Quarter: 2011Q4

REPORT INFORMATION
  Report Type: 
  Country: None (occurrence: None)
  Receive Date: 20111220
  Receipt Date: 20111212
  Transmission Date: 20120403
  Serious: Yes (Other)
  Sender: FDA-Public Use
  Company Number: CO-ROCHE-1023204

PATIENT
  Sex: Female

DRUGS (2)
  1. XOLAIR [Suspect]
     Indication: HYPERSENSITIVITY
     Route: 058
     Dates: start: 20110201, end: 20110909
  2. XOLAIR [Suspect]
     Dates: start: 20110909

REACTIONS (3)
  - HYPERHIDROSIS [None]
  - PALLOR [None]
  - PARAESTHESIA [None]
